FAERS Safety Report 21492655 (Version 1)
Quarter: 2022Q4

REPORT INFORMATION
  Report Type: Spontaneous
  Country: US (occurrence: US)
  Receive Date: 20221021
  Receipt Date: 20221021
  Transmission Date: 20230112
  Serious: Yes (Other)
  Sender: FDA-Public Use
  Company Number: US-GLAXOSMITHKLINE-US2022GSK149335

PATIENT

DRUGS (2)
  1. ACYCLOVIR [Suspect]
     Active Substance: ACYCLOVIR
     Indication: Herpes simplex encephalitis
     Dosage: UNK
  2. MANNITOL [Concomitant]
     Active Substance: MANNITOL
     Indication: Depressed level of consciousness
     Dosage: 0.5 MG/KG, QID

REACTIONS (1)
  - Crystal nephropathy [Unknown]
